FAERS Safety Report 6184423-9 (Version None)
Quarter: 2009Q2

REPORT INFORMATION
  Report Type: 
  Country: None (occurrence: None)
  Receive Date: 20090508
  Receipt Date: 20090430
  Transmission Date: 20091009
  Serious: Yes (Other)
  Sender: FDA-Public Use
  Company Number: B0573193A

PATIENT
  Age: 38 Year
  Sex: Female

DRUGS (3)
  1. ABACAVIR [Suspect]
     Indication: HIV INFECTION
  2. LAMIVUDINE [Suspect]
     Indication: HIV INFECTION
  3. EFAVIRENZ [Suspect]
     Indication: HIV INFECTION

REACTIONS (7)
  - ACANTHOSIS [None]
  - CD4 LYMPHOCYTES DECREASED [None]
  - IMMUNE RECONSTITUTION SYNDROME [None]
  - PARAKERATOSIS [None]
  - RASH PAPULAR [None]
  - SKIN LESION [None]
  - SKIN PAPILLOMA [None]
